FAERS Safety Report 21815415 (Version 2)
Quarter: 2023Q1

REPORT INFORMATION
  Report Type: Spontaneous
  Country: RU (occurrence: RU)
  Receive Date: 20230104
  Receipt Date: 20230113
  Transmission Date: 20230418
  Serious: Yes (Death, Other)
  Sender: FDA-Public Use
  Company Number: RU-SUN PHARMACEUTICAL INDUSTRIES LTD-2022R1-369484

PATIENT
  Age: 63 Year
  Sex: Male

DRUGS (1)
  1. NOREPINEPHRINE [Suspect]
     Active Substance: NOREPINEPHRINE
     Indication: Product used for unknown indication
     Dosage: UNK
     Route: 065

REACTIONS (2)
  - Therapy non-responder [Fatal]
  - Condition aggravated [Fatal]
